FAERS Safety Report 25957066 (Version 1)
Quarter: 2025Q4

REPORT INFORMATION
  Report Type: Spontaneous
  Country: US (occurrence: None)
  Receive Date: 20251023
  Receipt Date: 20251023
  Transmission Date: 20260117
  Serious: No
  Sender: FDA-CTU
  Company Number: None

PATIENT
  Age: 44 Year
  Sex: Female

DRUGS (13)
  1. ZYRTEC [Suspect]
     Active Substance: CETIRIZINE HYDROCHLORIDE
     Indication: Multiple allergies
     Dates: start: 20100101
  2. LEVOTHYROXINE [Concomitant]
     Active Substance: LEVOTHYROXINE
  3. RABEPRAZOLE [Concomitant]
     Active Substance: RABEPRAZOLE
  4. PRAZOSIN [Concomitant]
     Active Substance: PRAZOSIN
  5. MELATONIN [Concomitant]
     Active Substance: MELATONIN
  6. AllegraD [Concomitant]
  7. NASONEX [Concomitant]
     Active Substance: MOMETASONE FUROATE
  8. ZYRTEC [Concomitant]
     Active Substance: CETIRIZINE HYDROCHLORIDE
  9. METAXALONE [Concomitant]
     Active Substance: METAXALONE
  10. TRAMADOL [Concomitant]
     Active Substance: TRAMADOL
  11. TYLENOL [Concomitant]
     Active Substance: ACETAMINOPHEN
  12. NAPROXEN [Concomitant]
     Active Substance: NAPROXEN
  13. vaginal estradiol [Concomitant]

REACTIONS (6)
  - Product use issue [None]
  - Anxiety [None]
  - Insomnia [None]
  - Conversion disorder [None]
  - Crying [None]
  - Emotional disorder [None]

NARRATIVE: CASE EVENT DATE: 20251022
